FAERS Safety Report 4905809-3 (Version None)
Quarter: 2006Q1

REPORT INFORMATION
  Report Type: 
  Country: None (occurrence: None)
  Receive Date: 20060208
  Receipt Date: 20051025
  Transmission Date: 20060701
  Serious: Yes (Hospitalization, Disabling)
  Sender: FDA-Public Use
  Company Number: US-MERCK-0510USA09171

PATIENT
  Age: 52 Year
  Sex: Male
  Weight: 73 kg

DRUGS (1)
  1. VIOXX [Suspect]
     Indication: ARTHRALGIA
     Route: 048
     Dates: start: 20000809, end: 20040929

REACTIONS (17)
  - ACUTE MYOCARDIAL INFARCTION [None]
  - ARTERIOSCLEROSIS CORONARY ARTERY [None]
  - ATRIAL FIBRILLATION [None]
  - BACK PAIN [None]
  - BLOOD TRIGLYCERIDES INCREASED [None]
  - CARDIAC MURMUR [None]
  - CORONARY ARTERY DISEASE [None]
  - CORONARY ARTERY RESTENOSIS [None]
  - GASTROOESOPHAGEAL REFLUX DISEASE [None]
  - HIGH DENSITY LIPOPROTEIN DECREASED [None]
  - HYPERLIPIDAEMIA [None]
  - HYPERTENSION [None]
  - MYOCARDIAL ISCHAEMIA [None]
  - PAIN [None]
  - POST PROCEDURAL COMPLICATION [None]
  - SINUS TACHYCARDIA [None]
  - VENTRICULAR HYPERTROPHY [None]
